FAERS Safety Report 11403905 (Version 1)
Quarter: 2015Q3

REPORT INFORMATION
  Report Type: Spontaneous
  Country: US (occurrence: None)
  Receive Date: 20150820
  Receipt Date: 20150820
  Transmission Date: 20151125
  Serious: Yes (Hospitalization)
  Sender: FDA-Public Use
  Company Number: None

PATIENT
  Age: 56 Year
  Sex: Female
  Weight: 89 kg

DRUGS (7)
  1. ACYCLOVIR. [Concomitant]
     Active Substance: ACYCLOVIR
  2. CLONAZEPAM. [Concomitant]
     Active Substance: CLONAZEPAM
  3. TAK-659 [Concomitant]
  4. ZOLPIDEM [Concomitant]
     Active Substance: ZOLPIDEM\ZOLPIDEM TARTRATE
  5. AMLODIPIN [Concomitant]
     Active Substance: AMLODIPINE BESYLATE
  6. EYE DROPS OVER COUNTER [Concomitant]
  7. BARIUM SULFATE [Suspect]
     Active Substance: BARIUM SULFATE
     Indication: DIFFUSE LARGE B-CELL LYMPHOMA
     Dosage: 2 BOTTLES AT TIME OF SCAN TAKEN BY MOUTH
     Route: 048
     Dates: start: 20150819, end: 20150819

REACTIONS (6)
  - Pruritus [None]
  - Burning sensation [None]
  - Dizziness [None]
  - Abasia [None]
  - Hypertension [None]
  - Incoherent [None]

NARRATIVE: CASE EVENT DATE: 20150819
